FAERS Safety Report 7115706-3 (Version None)
Quarter: 2010Q4

REPORT INFORMATION
  Report Type: 
  Country: None (occurrence: None)
  Receive Date: 20101122
  Receipt Date: 20101109
  Transmission Date: 20110411
  Serious: No
  Sender: FDA-Public Use
  Company Number: US-ROXANE LABORATORIES, INC.-2010-RO-01495RO

PATIENT
  Age: 57 Year
  Sex: Female

DRUGS (1)
  1. BALSALAZIDE DISODIUM [Suspect]
     Indication: COLITIS ULCERATIVE
     Dosage: 6750 MG
     Route: 048

REACTIONS (4)
  - CARDIAC DISORDER [None]
  - HEADACHE [None]
  - MUSCLE TWITCHING [None]
  - RENAL DISORDER [None]
